FAERS Safety Report 7594174-1 (Version None)
Quarter: 2011Q3

REPORT INFORMATION
  Report Type: 
  Country: None (occurrence: None)
  Receive Date: 20110706
  Receipt Date: 20110624
  Transmission Date: 20111222
  Serious: Yes (Other)
  Sender: FDA-Public Use
  Company Number: PHHY2011US34418

PATIENT
  Sex: Male

DRUGS (2)
  1. GLEEVEC [Suspect]
     Indication: MALIGNANT SOFT TISSUE NEOPLASM
     Dosage: 400 MG, UNK
     Route: 048
     Dates: start: 20101227
  2. LASIX [Concomitant]
     Dosage: 20 MG, QOD

REACTIONS (10)
  - CARDIOMYOPATHY [None]
  - HYPERTENSION [None]
  - DIARRHOEA [None]
  - ABDOMINAL DISTENSION [None]
  - IRON DEFICIENCY ANAEMIA [None]
  - ATRIAL FIBRILLATION [None]
  - OEDEMA PERIPHERAL [None]
  - PORTAL VEIN STENOSIS [None]
  - GASTROINTESTINAL STROMAL TUMOUR [None]
  - THROMBOCYTOPENIA [None]
